FAERS Safety Report 5739313-X (Version None)
Quarter: 2008Q2

REPORT INFORMATION
  Report Type: 
  Country: None (occurrence: None)
  Receive Date: 20080515
  Receipt Date: 20080515
  Transmission Date: 20081010
  Serious: Yes (Life-Threatening, Hospitalization)
  Sender: FDA-Public Use
  Company Number: None

PATIENT
  Age: 72 Year
  Sex: Female
  Weight: 58.9676 kg

DRUGS (1)
  1. HEP-LOCK [Suspect]
     Indication: PHLEBOTOMY
     Dosage: 9000 UNITS  1 USE IV
     Route: 042
     Dates: start: 20080228

REACTIONS (1)
  - HAEMORRHAGE [None]
